FAERS Safety Report 8808081 (Version 2)
Quarter: 2012Q4

REPORT INFORMATION
  Report Type: 
  Country: US (occurrence: US)
  Receive Date: 20120926
  Receipt Date: 20121031
  Transmission Date: 20130627
  Serious: No
  Sender: FDA-Public Use
  Company Number: US-B.I. PHARMACEUTICALS,INC./RIDGEFIELD-2012-BP-23261BP

PATIENT
  Age: 55 Year
  Sex: Male

DRUGS (6)
  1. TRADJENTA [Suspect]
     Indication: BLOOD GLUCOSE INCREASED
     Dosage: 5 mg
     Dates: start: 201207
  2. TRADJENTA [Suspect]
     Indication: TYPE 2 DIABETES MELLITUS
  3. METFORMIN [Concomitant]
     Indication: BLOOD GLUCOSE INCREASED
  4. KEPRA [Concomitant]
     Indication: EPILEPSY
  5. GLYBURIDE [Concomitant]
     Indication: BLOOD GLUCOSE INCREASED
  6. FLOMAX [Concomitant]
     Indication: BENIGN PROSTATIC HYPERPLASIA
     Dosage: 0.4 mg
     Dates: start: 2009

REACTIONS (2)
  - Urine flow decreased [Recovered/Resolved]
  - Dysuria [Recovered/Resolved]
